FAERS Safety Report 6364412-1 (Version None)
Quarter: 2009Q3

REPORT INFORMATION
  Report Type: 
  Country: None (occurrence: None)
  Receive Date: 20090919
  Receipt Date: 20090721
  Transmission Date: 20100115
  Serious: No
  Sender: FDA-Public Use
  Company Number: US-ABBOTT-09P-163-0587286-00

PATIENT
  Sex: Female
  Weight: 78.996 kg

DRUGS (3)
  1. HUMIRA [Suspect]
     Indication: RHEUMATOID ARTHRITIS
     Route: 058
     Dates: start: 20090201
  2. GLYBURIDE [Concomitant]
     Indication: DIABETES MELLITUS
     Dosage: DOSE UNKNOWN
     Route: 048
  3. ACTOS [Concomitant]
     Indication: DIABETES MELLITUS
     Dosage: DOSE UNKNOWN
     Route: 048

REACTIONS (2)
  - INJECTION SITE IRRITATION [None]
  - INJECTION SITE SWELLING [None]
